FAERS Safety Report 4635254-X (Version None)
Quarter: 2005Q2

REPORT INFORMATION
  Report Type: 
  Country: None (occurrence: None)
  Receive Date: 20050411
  Receipt Date: 20050404
  Transmission Date: 20051028
  Serious: Yes (Other)
  Sender: FDA-Public Use
  Company Number: 200510660BWH

PATIENT
  Age: 51 Year
  Sex: Female

DRUGS (1)
  1. CIPRO XR [Suspect]
     Indication: CYSTITIS
     Dosage: 1000 MG, TOTAL DAILY, ORAL
     Route: 048

REACTIONS (10)
  - CHILLS [None]
  - DIARRHOEA [None]
  - HYPERHIDROSIS [None]
  - LOSS OF CONSCIOUSNESS [None]
  - NAUSEA [None]
  - PYREXIA [None]
  - RENAL DISORDER [None]
  - VISUAL ACUITY REDUCED [None]
  - VOMITING [None]
  - WEIGHT DECREASED [None]
